FAERS Safety Report 6480911-6 (Version None)
Quarter: 2009Q4

REPORT INFORMATION
  Report Type: 
  Country: None (occurrence: None)
  Receive Date: 20091208
  Receipt Date: 20091127
  Transmission Date: 20100525
  Serious: Yes (Other)
  Sender: FDA-Public Use
  Company Number: PHEH2009US15238

PATIENT
  Age: 71 Year
  Sex: Male

DRUGS (1)
  1. GLEEVEC [Suspect]
     Indication: HYPEREOSINOPHILIC SYNDROME
     Dosage: 100 MG, DAILY
     Route: 048
     Dates: start: 20090721

REACTIONS (7)
  - AMNESIA [None]
  - CONFUSIONAL STATE [None]
  - INSOMNIA [None]
  - LACRIMATION INCREASED [None]
  - MUSCULAR WEAKNESS [None]
  - MYALGIA [None]
  - PARAESTHESIA ORAL [None]
